FAERS Safety Report 19971746 (Version 7)
Quarter: 2022Q3

REPORT INFORMATION
  Report Type: Report from Study
  Country: CO (occurrence: CO)
  Receive Date: 20211019
  Receipt Date: 20220729
  Transmission Date: 20221027
  Serious: Yes (Hospitalization)
  Sender: FDA-Public Use
  Company Number: CO-NOVARTISPH-NVSC2021CO236987

PATIENT
  Sex: Male

DRUGS (1)
  1. COSENTYX [Suspect]
     Active Substance: SECUKINUMAB
     Indication: Psoriasis
     Dosage: 300 MG, QMO
     Route: 058

REACTIONS (8)
  - Lithiasis [Unknown]
  - Malaise [Unknown]
  - Testicular swelling [Unknown]
  - Pain [Unknown]
  - Urinary tract infection [Unknown]
  - Renal pain [Not Recovered/Not Resolved]
  - Testicular pain [Unknown]
  - Illness [Unknown]
